FAERS Safety Report 5571769-8 (Version None)
Quarter: 2007Q4

REPORT INFORMATION
  Report Type: 
  Country: None (occurrence: None)
  Receive Date: 20071221
  Receipt Date: 20071219
  Transmission Date: 20080405
  Serious: Yes (Other)
  Sender: FDA-Public Use
  Company Number: B0498269A

PATIENT
  Age: 9 Year
  Sex: Male
  Weight: 31.9 kg

DRUGS (5)
  1. RELENZA [Suspect]
     Indication: INFLUENZA
     Dosage: 10MG TWICE PER DAY
     Route: 055
     Dates: start: 20071117, end: 20071120
  2. UNKNOWN DRUG [Concomitant]
     Route: 065
  3. BIOFERMIN R [Concomitant]
     Route: 048
  4. MUCODYNE [Concomitant]
     Route: 048
  5. ASVERIN [Concomitant]
     Route: 048

REACTIONS (1)
  - ABNORMAL BEHAVIOUR [None]
